FAERS Safety Report 9139879 (Version 1)
Quarter: 2013Q1

REPORT INFORMATION
  Report Type: Spontaneous
  Country: US (occurrence: US)
  Receive Date: 20130305
  Receipt Date: 20130305
  Transmission Date: 20140127
  Serious: Yes (Other)
  Sender: FDA-Public Use
  Company Number: US-JNJFOC-20130215802

PATIENT
  Sex: Female

DRUGS (1)
  1. ORTHO MICRONOR [Suspect]
     Indication: POSTPARTUM STATE
     Route: 065

REACTIONS (2)
  - Coeliac disease [Unknown]
  - Hypersensitivity [Unknown]
